FAERS Safety Report 19179257 (Version 1)
Quarter: 2021Q2

REPORT INFORMATION
  Report Type: Spontaneous
  Country: FR (occurrence: FR)
  Receive Date: 20210426
  Receipt Date: 20210426
  Transmission Date: 20210717
  Serious: Yes (Other)
  Sender: FDA-Public Use
  Company Number: FR-LUPIN PHARMACEUTICALS INC.-2021-05547

PATIENT
  Age: 40 Year
  Sex: Female

DRUGS (2)
  1. TRAMADOL. [Suspect]
     Active Substance: TRAMADOL
     Indication: BLADDER PAIN
     Dosage: UNK SUSTAINED RELEASE
     Route: 065
     Dates: end: 2019
  2. TRAMADOL. [Suspect]
     Active Substance: TRAMADOL
     Dosage: UNK?TRAMADOL 50 MG EVERY HOUR, I.E. 10 TO 12 PER DAY
     Route: 065
     Dates: start: 2013

REACTIONS (4)
  - Overdose [Unknown]
  - Hyperaesthesia [Recovered/Resolved]
  - Intentional product misuse [Unknown]
  - Drug dependence [Recovered/Resolved]
